FAERS Safety Report 16195122 (Version 1)
Quarter: 2019Q2

REPORT INFORMATION
  Report Type: Spontaneous
  Country: US (occurrence: US)
  Receive Date: 20190415
  Receipt Date: 20190415
  Transmission Date: 20190711
  Serious: No
  Sender: FDA-Public Use
  Company Number: US-GLAXOSMITHKLINE-US2019GSK063598

PATIENT

DRUGS (1)
  1. BENLYSTA [Suspect]
     Active Substance: BELIMUMAB
     Indication: PRODUCT USED FOR UNKNOWN INDICATION
     Dosage: UNK

REACTIONS (9)
  - Joint swelling [Unknown]
  - Sleep disorder [Unknown]
  - Rash [Recovering/Resolving]
  - Ill-defined disorder [Unknown]
  - Product dose omission [Unknown]
  - Peripheral swelling [Unknown]
  - Pain [Unknown]
  - Musculoskeletal stiffness [Unknown]
  - Infection [Unknown]

NARRATIVE: CASE EVENT DATE: 20190406
